FAERS Safety Report 9697383 (Version 3)
Quarter: 2013Q4

REPORT INFORMATION
  Report Type: Spontaneous
  Country: FR (occurrence: FR)
  Receive Date: 20131120
  Receipt Date: 20131219
  Transmission Date: 20140711
  Serious: Yes (Hospitalization, Other)
  Sender: FDA-Public Use
  Company Number: FR-BEH-2013038576

PATIENT
  Age: 14 Year
  Sex: Female

DRUGS (3)
  1. PRIVIGEN [Suspect]
     Dates: start: 20120722, end: 20130731
  2. RED BLOOD CELLS PACK [Concomitant]
  3. IMMUNOSUPPRESSANT TREATMENT [Concomitant]

REACTIONS (1)
  - Cytomegalovirus infection [Not Recovered/Not Resolved]
